FAERS Safety Report 7402850-6 (Version None)
Quarter: 2011Q1

REPORT INFORMATION
  Report Type: 
  Country: None (occurrence: None)
  Receive Date: 20110329
  Receipt Date: 20110308
  Transmission Date: 20110831
  Serious: Yes (Hospitalization)
  Sender: FDA-Public Use
  Company Number: JPI-P-014153

PATIENT
  Age: 23 Year
  Sex: Female
  Weight: 56.6996 kg

DRUGS (9)
  1. NAPROXEN [Concomitant]
  2. ALMOTRIPTAN [Concomitant]
  3. XYREM [Suspect]
     Indication: NARCOLEPSY
     Dosage: SEE IMAGE
     Route: 048
     Dates: start: 20060101, end: 20060101
  4. XYREM [Suspect]
     Indication: NARCOLEPSY
     Dosage: SEE IMAGE
     Route: 048
     Dates: start: 20060324, end: 20060101
  5. XYREM [Suspect]
     Indication: NARCOLEPSY
     Dosage: SEE IMAGE
     Route: 048
     Dates: start: 20060711
  6. TOPIRAMATE [Suspect]
     Indication: MIGRAINE
     Dosage: 50 MG (50 MG, 1 IN 1 D); 100 MG (100 MG, 1 IN 1 D); 75 MG (75 MG, 1 IN 1 D)
     Dates: start: 20101101
  7. TOPIRAMATE [Suspect]
     Indication: MIGRAINE
     Dosage: 50 MG (50 MG, 1 IN 1 D); 100 MG (100 MG, 1 IN 1 D); 75 MG (75 MG, 1 IN 1 D)
     Dates: start: 20110101
  8. TOPIRAMATE [Suspect]
     Indication: MIGRAINE
     Dosage: 50 MG (50 MG, 1 IN 1 D); 100 MG (100 MG, 1 IN 1 D); 75 MG (75 MG, 1 IN 1 D)
     Dates: start: 20110101, end: 20110101
  9. IBUPROFEN [Concomitant]

REACTIONS (14)
  - EYE MOVEMENT DISORDER [None]
  - TREMOR [None]
  - LETHARGY [None]
  - COMMUNICATION DISORDER [None]
  - INCOHERENT [None]
  - SPEECH DISORDER [None]
  - SOMNAMBULISM [None]
  - HEAD INJURY [None]
  - FALL [None]
  - PETIT MAL EPILEPSY [None]
  - GAIT DISTURBANCE [None]
  - HEART RATE INCREASED [None]
  - GASTROENTERITIS VIRAL [None]
  - CONTUSION [None]
